FAERS Safety Report 6629622-4 (Version None)
Quarter: 2010Q1

REPORT INFORMATION
  Report Type: 
  Country: None (occurrence: None)
  Receive Date: 20100310
  Receipt Date: 20100310
  Transmission Date: 20100710
  Serious: Yes (Other)
  Sender: FDA-Public Use
  Company Number: None

PATIENT
  Sex: Male
  Weight: 90.7194 kg

DRUGS (2)
  1. LIPITOR [Suspect]
     Indication: BLOOD CHOLESTEROL
     Dosage: 40 MG 1 A DAY ORAL
     Route: 048
     Dates: start: 20081201, end: 20100201
  2. LISINOPRIL [Suspect]
     Indication: BLOOD PRESSURE MANAGEMENT
     Dosage: 20 MG 2 A DAY ORAL
     Route: 048
     Dates: start: 20081201, end: 20100201

REACTIONS (8)
  - CHEST PAIN [None]
  - COUGH [None]
  - HYPOAESTHESIA [None]
  - MOVEMENT DISORDER [None]
  - MUSCLE SPASMS [None]
  - OROPHARYNGEAL PAIN [None]
  - PAIN IN EXTREMITY [None]
  - SINUS DISORDER [None]
